FAERS Safety Report 12296370 (Version 1)
Quarter: 2016Q2

REPORT INFORMATION
  Report Type: Spontaneous
  Country: CN (occurrence: CN)
  Receive Date: 20160422
  Receipt Date: 20160422
  Transmission Date: 20160815
  Serious: Yes (Other)
  Sender: FDA-Public Use
  Company Number: CN-BAYER-2016-076295

PATIENT
  Age: 77 Year
  Sex: Female
  Weight: 73 kg

DRUGS (3)
  1. KETOTIFEN [Concomitant]
     Active Substance: KETOTIFEN
     Dosage: 1 MG, UNK
  2. GLUCOBAY [Suspect]
     Active Substance: ACARBOSE
     Indication: HYPERGLYCAEMIA
     Dosage: 50 MG, TID
     Dates: start: 20151026, end: 20151027
  3. LIQUORICE [Concomitant]
     Active Substance: LICORICE
     Dosage: 10 ML, UNK
     Route: 048

REACTIONS (2)
  - Dysarthria [Recovered/Resolved]
  - Cough [Recovered/Resolved]

NARRATIVE: CASE EVENT DATE: 20151026
